FAERS Safety Report 4964369-1 (Version None)
Quarter: 2006Q2

REPORT INFORMATION
  Report Type: 
  Country: None (occurrence: None)
  Receive Date: 20060406
  Receipt Date: 20060330
  Transmission Date: 20061013
  Serious: Yes (Hospitalization)
  Sender: FDA-Public Use
  Company Number: 2006UW05652

PATIENT
  Age: 31034 Day
  Sex: Female

DRUGS (9)
  1. SEROQUEL [Suspect]
     Indication: HALLUCINATION
     Route: 048
  2. SINEMET [Concomitant]
     Dosage: 25/100
  3. AMBIEN [Concomitant]
  4. ATENOLOL [Concomitant]
  5. POTASSIUM CHLORIDE [Concomitant]
  6. PROTONIX [Concomitant]
  7. LASIX [Concomitant]
  8. ATIVAN [Concomitant]
  9. DULCOLOX [Concomitant]

REACTIONS (2)
  - FALL [None]
  - WRIST FRACTURE [None]
